FAERS Safety Report 21240060 (Version 1)
Quarter: 2022Q3

REPORT INFORMATION
  Report Type: Spontaneous
  Country: US (occurrence: None)
  Receive Date: 20220821
  Receipt Date: 20220821
  Transmission Date: 20221027
  Serious: Yes (Life-Threatening, Hospitalization)
  Sender: FDA-Public Use
  Company Number: None

PATIENT
  Age: 73 Year
  Sex: Female

DRUGS (8)
  1. LORAZEPAM [Suspect]
     Active Substance: LORAZEPAM
  2. IOHEXOL [Suspect]
     Active Substance: IOHEXOL
     Indication: Product used for unknown indication
  3. ASPIRIN [Concomitant]
     Active Substance: ASPIRIN
  4. BENAZEPRIL [Concomitant]
     Active Substance: BENAZEPRIL HYDROCHLORIDE
  5. FUROSEMIDE [Concomitant]
     Active Substance: FUROSEMIDE
  6. GLIPIZIDE [Concomitant]
     Active Substance: GLIPIZIDE
  7. METFORMIN [Concomitant]
     Active Substance: METFORMIN HYDROCHLORIDE
  8. PIOGLITAZONE [Concomitant]
     Active Substance: PIOGLITAZONE

REACTIONS (10)
  - Blood glucose decreased [None]
  - Procedural complication [None]
  - Unevaluable investigation [None]
  - Dyskinesia [None]
  - Hyperkalaemia [None]
  - Depressed level of consciousness [None]
  - Apnoea [None]
  - Hyponatraemia [None]
  - Acute kidney injury [None]
  - Extradural haematoma [None]

NARRATIVE: CASE EVENT DATE: 20220317
